FAERS Safety Report 21361763 (Version 3)
Quarter: 2022Q4

REPORT INFORMATION
  Report Type: Report from Study
  Country: AU (occurrence: AU)
  Receive Date: 20220921
  Receipt Date: 20221021
  Transmission Date: 20230113
  Serious: Yes (Hospitalization)
  Sender: FDA-Public Use
  Company Number: AU-BIOGEN-2022BI01123939

PATIENT
  Sex: Female
  Weight: 50 kg

DRUGS (6)
  1. TECFIDERA [Suspect]
     Active Substance: DIMETHYL FUMARATE
     Indication: Relapsing-remitting multiple sclerosis
     Dosage: 120 MG MORNING AND 240 MG IN EVENING
     Route: 050
     Dates: start: 20220511
  2. TECFIDERA [Suspect]
     Active Substance: DIMETHYL FUMARATE
     Route: 050
     Dates: start: 20220511
  3. TECFIDERA [Suspect]
     Active Substance: DIMETHYL FUMARATE
     Route: 050
     Dates: start: 20220622
  4. TECFIDERA [Suspect]
     Active Substance: DIMETHYL FUMARATE
     Route: 050
     Dates: start: 20220511
  5. TECFIDERA [Suspect]
     Active Substance: DIMETHYL FUMARATE
     Dosage: WITHHELD SINCE 15 SEP 2022
     Route: 050
     Dates: start: 2022, end: 20220915
  6. TECFIDERA [Suspect]
     Active Substance: DIMETHYL FUMARATE
     Route: 050
     Dates: start: 20220511, end: 20220915

REACTIONS (23)
  - Decreased appetite [Not Recovered/Not Resolved]
  - Hot flush [Recovered/Resolved]
  - Product dose omission in error [Unknown]
  - Nocturia [Not Recovered/Not Resolved]
  - Affect lability [Not Recovered/Not Resolved]
  - Paranoia [Not Recovered/Not Resolved]
  - Middle insomnia [Not Recovered/Not Resolved]
  - Hypermetabolism [Not Recovered/Not Resolved]
  - Insomnia [Not Recovered/Not Resolved]
  - Faeces soft [Not Recovered/Not Resolved]
  - Frequent bowel movements [Unknown]
  - Depressed mood [Unknown]
  - Constipation [Unknown]
  - Weight decreased [Unknown]
  - Energy increased [Recovered/Resolved]
  - Progressive multiple sclerosis [Unknown]
  - Oligomenorrhoea [Unknown]
  - Multiple sclerosis relapse [Unknown]
  - Emotional distress [Unknown]
  - Body mass index decreased [Not Recovered/Not Resolved]
  - Diarrhoea [Not Recovered/Not Resolved]
  - Feeling hot [Recovered/Resolved]
  - Pruritus [Recovered/Resolved]

NARRATIVE: CASE EVENT DATE: 20220101
